FAERS Safety Report 8392637-2 (Version None)
Quarter: 2012Q2

REPORT INFORMATION
  Report Type: 
  Country: None (occurrence: None)
  Receive Date: 20120525
  Receipt Date: 20120525
  Transmission Date: 20120825
  Serious: Yes (Death)
  Sender: FDA-Public Use
  Company Number: None

PATIENT
  Age: 60 Year
  Sex: Male
  Weight: 111 kg

DRUGS (2)
  1. ERBITUX [Suspect]
     Indication: TONSIL CANCER
     Dosage: 800MG ONCE IV
     Route: 042
     Dates: start: 20120514, end: 20120514
  2. ERBITUX [Suspect]

REACTIONS (10)
  - OCULAR HYPERAEMIA [None]
  - CYANOSIS [None]
  - DYSPNOEA [None]
  - FLUSHING [None]
  - PULSE ABSENT [None]
  - PRURITUS [None]
  - CARDIAC DISORDER [None]
  - INCOHERENT [None]
  - AGITATION [None]
  - UNRESPONSIVE TO STIMULI [None]
